FAERS Safety Report 24825034 (Version 1)
Quarter: 2025Q1

REPORT INFORMATION
  Report Type: Spontaneous
  Country: SE (occurrence: SE)
  Receive Date: 20250109
  Receipt Date: 20250109
  Transmission Date: 20250409
  Serious: Yes (Other)
  Sender: Haleon PLC
  Company Number: None

PATIENT
  Age: 10 Month
  Sex: Female
  Weight: 18 kg

DRUGS (3)
  1. ACETAMINOPHEN [Suspect]
     Active Substance: ACETAMINOPHEN
     Indication: Malaise
     Route: 048
     Dates: start: 20190420
  2. ACETAMINOPHEN [Suspect]
     Active Substance: ACETAMINOPHEN
     Indication: Pyrexia
  3. IBUPROFEN [Concomitant]
     Active Substance: IBUPROFEN
     Indication: Product used for unknown indication

REACTIONS (2)
  - Hallucination [Unknown]
  - Febrile convulsion [Recovered/Resolved]

NARRATIVE: CASE EVENT DATE: 20190420
